FAERS Safety Report 7111377-0 (Version None)
Quarter: 2010Q4

REPORT INFORMATION
  Report Type: 
  Country: None (occurrence: None)
  Receive Date: 20101118
  Receipt Date: 20100224
  Transmission Date: 20110411
  Serious: Yes (Other)
  Sender: FDA-Public Use
  Company Number: US-AMGEN-USASP2010004657

PATIENT

DRUGS (2)
  1. NPLATE [Suspect]
     Indication: IDIOPATHIC THROMBOCYTOPENIC PURPURA
     Dosage: UNK
     Dates: start: 20081010, end: 20100203
  2. CORTICOSTEROIDS [Concomitant]
     Dosage: UNK
     Dates: start: 20080917

REACTIONS (1)
  - MYELODYSPLASTIC SYNDROME [None]
